FAERS Safety Report 21804180 (Version 4)
Quarter: 2023Q1

REPORT INFORMATION
  Report Type: Spontaneous
  Country: US (occurrence: US)
  Receive Date: 20230102
  Receipt Date: 20230330
  Transmission Date: 20230417
  Serious: No
  Sender: FDA-Public Use
  Company Number: US-BIOGEN-2022BI01178406

PATIENT
  Sex: Female

DRUGS (2)
  1. TECFIDERA [Suspect]
     Active Substance: DIMETHYL FUMARATE
     Indication: Product used for unknown indication
     Route: 050
     Dates: start: 202109
  2. TECFIDERA [Suspect]
     Active Substance: DIMETHYL FUMARATE
     Route: 050
     Dates: start: 202211, end: 202301

REACTIONS (16)
  - Drug ineffective [Unknown]
  - Headache [Not Recovered/Not Resolved]
  - Musculoskeletal disorder [Unknown]
  - Balance disorder [Unknown]
  - Muscular weakness [Unknown]
  - Defaecation urgency [Unknown]
  - Constipation [Unknown]
  - Muscle spasms [Unknown]
  - Gait disturbance [Unknown]
  - Motion sickness [Unknown]
  - Gastric disorder [Unknown]
  - Swelling face [Recovered/Resolved]
  - Fatigue [Recovered/Resolved]
  - Diarrhoea [Unknown]
  - Flushing [Recovered/Resolved]
  - Rash [Recovered/Resolved]
